FAERS Safety Report 18592360 (Version 1)
Quarter: 2020Q4

REPORT INFORMATION
  Report Type: Spontaneous
  Country: SI (occurrence: SI)
  Receive Date: 20201209
  Receipt Date: 20201209
  Transmission Date: 20210114
  Serious: Yes (Death, Other)
  Sender: FDA-Public Use
  Company Number: SI-ABBVIE-20K-261-3682813-00

PATIENT
  Age: 63 Year
  Sex: Female

DRUGS (2)
  1. RITUXIMAB. [Concomitant]
     Active Substance: RITUXIMAB
     Indication: PRODUCT USED FOR UNKNOWN INDICATION
  2. VENETOCLAX. [Suspect]
     Active Substance: VENETOCLAX
     Indication: CHRONIC LYMPHOCYTIC LEUKAEMIA
     Route: 048
     Dates: end: 202003

REACTIONS (3)
  - Extranodal marginal zone B-cell lymphoma (MALT type) [Unknown]
  - Richter^s syndrome [Unknown]
  - Pyrexia [Fatal]

NARRATIVE: CASE EVENT DATE: 202001
